FAERS Safety Report 9378568 (Version 2)
Quarter: 2014Q1

REPORT INFORMATION
  Report Type: Spontaneous
  Country: US (occurrence: US)
  Receive Date: 20130702
  Receipt Date: 20140131
  Transmission Date: 20141002
  Serious: Yes (Disabling)
  Sender: FDA-Public Use
  Company Number: US-ASTRAZENECA-2012SE35672

PATIENT
  Age: 44 Year
  Sex: Male

DRUGS (13)
  1. NEXIUM [Suspect]
     Indication: GASTROOESOPHAGEAL REFLUX DISEASE
     Route: 048
  2. NEXIUM [Suspect]
     Indication: GASTROOESOPHAGEAL REFLUX DISEASE
     Route: 048
     Dates: start: 20021014
  3. PRILOSEC [Suspect]
     Dosage: 20/40MG
     Route: 048
  4. LISINOPRIL [Concomitant]
  5. FOLIC ACID [Concomitant]
  6. PREDISONE [Concomitant]
  7. METHOTREXATE [Concomitant]
  8. CARISOPRODOL [Concomitant]
     Dates: start: 20040419
  9. LORAZEPAM [Concomitant]
     Dates: start: 20080211
  10. DIAZEPAM [Concomitant]
     Dates: start: 20090112
  11. OXYCONTIN [Concomitant]
     Dates: start: 20100812
  12. CITALOPRAM HBR [Concomitant]
     Dates: start: 20101008
  13. IBUPROFEN [Concomitant]
     Dates: start: 20040419

REACTIONS (8)
  - Limb crushing injury [Unknown]
  - Osteoporosis [Unknown]
  - Upper limb fracture [Unknown]
  - Arthritis [Unknown]
  - Scoliosis [Unknown]
  - Depression [Unknown]
  - Humerus fracture [Unknown]
  - Fall [Unknown]
